FAERS Safety Report 8887303 (Version 2)
Quarter: 2012Q4

REPORT INFORMATION
  Report Type: 
  Country: US (occurrence: None)
  Receive Date: 20121105
  Receipt Date: 20121127
  Transmission Date: 20130627
  Serious: Yes (Life-Threatening, Hospitalization, Disabling, Other)
  Sender: FDA-Public Use
  Company Number: None

PATIENT
  Age: 51 Year
  Sex: Male

DRUGS (1)
  1. DEXAMETHASONE\LIDOCAINE\TRIAMCINOLONE [Suspect]
     Dates: start: 20111214, end: 20111214

REACTIONS (7)
  - Osteomyelitis acute [None]
  - Skin graft [None]
  - Product quality issue [None]
  - Dysstasia [None]
  - Sepsis [None]
  - Impaired healing [None]
  - Bacterial test positive [None]
